FAERS Safety Report 9764920 (Version 1)
Quarter: 2013Q4

REPORT INFORMATION
  Report Type: Spontaneous
  Country: US (occurrence: US)
  Receive Date: 20131217
  Receipt Date: 20131217
  Transmission Date: 20140711
  Serious: No
  Sender: FDA-Public Use
  Company Number: US-BIOGENIDEC-2013BI111446

PATIENT
  Sex: Female

DRUGS (9)
  1. TECFIDERA [Suspect]
     Indication: MULTIPLE SCLEROSIS
     Route: 048
     Dates: start: 20130813
  2. AMLODIPINE BESYLATE [Concomitant]
  3. DIOVAN HCT [Concomitant]
  4. FENOFIBRATE [Concomitant]
  5. FUROSEMIDE [Concomitant]
  6. KLOR-CON [Concomitant]
  7. LEXAPRO [Concomitant]
  8. METOPROLOL TARTRATE [Concomitant]
  9. PREMARIN [Concomitant]

REACTIONS (3)
  - Sinusitis [Unknown]
  - Diarrhoea [Unknown]
  - Flushing [Unknown]
